FAERS Safety Report 21960006 (Version 2)
Quarter: 2023Q2

REPORT INFORMATION
  Report Type: Spontaneous
  Country: US (occurrence: US)
  Receive Date: 20230206
  Receipt Date: 20230525
  Transmission Date: 20230721
  Serious: No
  Sender: FDA-Public Use
  Company Number: US-ELI_LILLY_AND_COMPANY-US202301010947

PATIENT
  Age: 56 Year
  Sex: Male

DRUGS (7)
  1. MOUNJARO [Suspect]
     Active Substance: TIRZEPATIDE
     Indication: Weight decreased
     Dosage: 2.5 MG, UNKNOWN
     Route: 065
     Dates: start: 20221010
  2. MOUNJARO [Suspect]
     Active Substance: TIRZEPATIDE
     Dosage: 5 MG, UNKNOWN
     Route: 065
     Dates: start: 202211
  3. MOUNJARO [Suspect]
     Active Substance: TIRZEPATIDE
     Indication: Weight decreased
     Dosage: 7.5 MG, UNKNOWN
     Route: 065
     Dates: start: 20230114
  4. MOUNJARO [Suspect]
     Active Substance: TIRZEPATIDE
     Indication: Weight decreased
     Dosage: 15 MG, UNKNOWN
     Route: 058
  5. CRESTOR [Concomitant]
     Active Substance: ROSUVASTATIN CALCIUM
     Indication: Blood cholesterol
     Dosage: 10 MG, DAILY
  6. ANDROGEL [Concomitant]
     Active Substance: TESTOSTERONE
     Indication: Blood testosterone
     Dosage: 20.5 MG, BID
  7. LEVITRA [Concomitant]
     Active Substance: VARDENAFIL HYDROCHLORIDE
     Indication: Erectile dysfunction
     Dosage: 20 MG, OTHER (AN HOUR BEFORE SEX)

REACTIONS (4)
  - Libido decreased [Unknown]
  - Dizziness postural [Unknown]
  - Off label use [Unknown]
  - Haemoglobin increased [Unknown]

NARRATIVE: CASE EVENT DATE: 20230122
